FAERS Safety Report 9799395 (Version 1)
Quarter: 2013Q4

REPORT INFORMATION
  Report Type: Spontaneous
  Country: GB (occurrence: None)
  Receive Date: 20131231
  Receipt Date: 20131231
  Transmission Date: 20140711
  Serious: Yes (Life-Threatening, Hospitalization)
  Sender: FDA-Public Use
  Company Number: AUR-APL-2013-10768

PATIENT
  Age: 77 Year
  Sex: 0

DRUGS (10)
  1. CITALOPRAM (CITALOPRAM) [Suspect]
     Indication: PRODUCT USED FOR UNKNOWN INDICATION
     Route: 048
  2. EXJADE [Suspect]
     Indication: PRODUCT USED FOR UNKNOWN INDICATION
     Dosage: 1.5 GM, 1 D
     Route: 048
     Dates: start: 20120910, end: 20131010
  3. HYDROCORTISONE [Suspect]
     Indication: PRODUCT USED FOR UNKNOWN INDICATION
     Route: 048
  4. BECLOMETASONE [Concomitant]
  5. CO-CODAMOL (PANADEINE CO) [Concomitant]
  6. HYDROXYCARBAMIDE [Concomitant]
  7. MORPHINE SULPHATE (MORPHINE SULFATE) [Concomitant]
  8. PREGABALIN (PREGABALIN) [Concomitant]
  9. SALBUTAMOL (SALBUTAMOL) [Concomitant]
  10. SITAGLIPTIN (SITAGLIPTIN) [Concomitant]

REACTIONS (6)
  - Haematemesis [None]
  - Melaena [None]
  - Dizziness [None]
  - Duodenal ulcer haemorrhage [None]
  - Duodenal ulcer perforation [None]
  - Deep vein thrombosis [None]
